FAERS Safety Report 7585488-X (Version None)
Quarter: 2011Q2

REPORT INFORMATION
  Report Type: 
  Country: None (occurrence: None)
  Receive Date: 20110531
  Receipt Date: 20100514
  Transmission Date: 20111010
  Serious: Yes (Hospitalization, Other)
  Sender: FDA-Public Use
  Company Number: WAES 1005USA02038

PATIENT
  Sex: Male

DRUGS (2)
  1. PRAVACHOL [Concomitant]
  2. JANUMET [Suspect]
     Indication: TYPE 2 DIABETES MELLITUS
     Dosage: /PO
     Route: 048

REACTIONS (1)
  - PANCREATITIS [None]
